FAERS Safety Report 20544512 (Version 1)
Quarter: 2022Q1

REPORT INFORMATION
  Report Type: Report from Study
  Country: FR (occurrence: FR)
  Receive Date: 20220303
  Receipt Date: 20220303
  Transmission Date: 20220423
  Serious: Yes (Other)
  Sender: FDA-Public Use
  Company Number: FR-SERVIER-S22002056

PATIENT

DRUGS (9)
  1. PEGASPARGASE [Suspect]
     Active Substance: PEGASPARGASE
     Indication: Acute lymphocytic leukaemia
     Dosage: 3050 IU, D12
     Route: 042
     Dates: start: 20211201, end: 20211201
  2. VINCRISTINE [Suspect]
     Active Substance: VINCRISTINE
     Indication: Acute lymphocytic leukaemia
     Dosage: 1.9 MG, D8
     Route: 042
     Dates: start: 20211127, end: 20211127
  3. VINCRISTINE [Suspect]
     Active Substance: VINCRISTINE
     Dosage: 1.8 MG, D15, D22
     Route: 042
     Dates: start: 20211204, end: 20211211
  4. TN UNSPECIFIED [Concomitant]
     Indication: Acute lymphocytic leukaemia
     Dosage: 75 MG, D1 TO D8
     Route: 048
     Dates: start: 20211120
  5. TN UNSPECIFIED [Concomitant]
     Indication: Acute lymphocytic leukaemia
     Dosage: 15 MG, D5, D9, D13, D17, D24
     Route: 037
     Dates: start: 20211124
  6. TN UNSPECIFIED [Concomitant]
     Indication: Acute lymphocytic leukaemia
     Dosage: 38 MG, D8
     Route: 042
     Dates: start: 20211127, end: 20211127
  7. TN UNSPECIFIED [Concomitant]
     Dosage: 36.5 MG, D15, D22
     Route: 042
     Dates: start: 20211204, end: 20211211
  8. TN UNSPECIFIED [Concomitant]
     Indication: Acute lymphocytic leukaemia
     Dosage: 30 MG, D9, D13, D17, D24
     Route: 037
     Dates: start: 20211128
  9. TN UNSPECIFIED [Concomitant]
     Indication: Acute lymphocytic leukaemia
     Dosage: 15 MG, D9, D13, D17, D24
     Route: 037
     Dates: start: 20211128

REACTIONS (1)
  - Neuralgia [Recovering/Resolving]

NARRATIVE: CASE EVENT DATE: 20211213
